FAERS Safety Report 6155752-X (Version None)
Quarter: 2009Q2

REPORT INFORMATION
  Report Type: 
  Country: None (occurrence: None)
  Receive Date: 20090415
  Receipt Date: 20090413
  Transmission Date: 20091009
  Serious: Yes (Hospitalization)
  Sender: FDA-Public Use
  Company Number: US-BRISTOL-MYERS SQUIBB COMPANY-14580971

PATIENT
  Age: 74 Year
  Sex: Male

DRUGS (5)
  1. ERBITUX [Suspect]
     Indication: HEAD AND NECK CANCER
     Dates: start: 20081223, end: 20090223
  2. CISPLATIN [Suspect]
     Indication: HEAD AND NECK CANCER
  3. RADIATION THERAPY [Suspect]
     Indication: HEAD AND NECK CANCER
  4. FLUOROURACIL [Suspect]
     Indication: HEAD AND NECK CANCER
  5. TAXOTERE [Suspect]
     Indication: HEAD AND NECK CANCER

REACTIONS (4)
  - INFECTION [None]
  - PNEUMONIA [None]
  - SKIN REACTION [None]
  - THROMBOSIS [None]
